FAERS Safety Report 25069527 (Version 2)
Quarter: 2025Q1

REPORT INFORMATION
  Report Type: Report from Study
  Country: PH (occurrence: PH)
  Receive Date: 20250312
  Receipt Date: 20250314
  Transmission Date: 20250409
  Serious: Yes (Death, Other)
  Sender: OTSUKA
  Company Number: PH-MMM-Otsuka-17CKBPAD

PATIENT

DRUGS (1)
  1. ARIPIPRAZOLE [Suspect]
     Active Substance: ARIPIPRAZOLE
     Indication: Product used for unknown indication
     Dosage: 10 MG 1 TABLET A DAY
     Route: 048
     Dates: end: 20250222

REACTIONS (1)
  - Neoplasm malignant [Fatal]
